FAERS Safety Report 5971570-7 (Version None)
Quarter: 2008Q4

REPORT INFORMATION
  Report Type: 
  Country: None (occurrence: None)
  Receive Date: 20081126
  Receipt Date: 20081126
  Transmission Date: 20090506
  Serious: Yes (Disabling)
  Sender: FDA-Public Use
  Company Number: None

PATIENT
  Age: 51 Year
  Sex: Female
  Weight: 53.0709 kg

DRUGS (1)
  1. ACTONEL [Suspect]
     Indication: OSTEOPOROSIS
     Dosage: 35 MG WKLY PO
     Route: 048
     Dates: start: 20071216

REACTIONS (3)
  - BACK PAIN [None]
  - INFLUENZA LIKE ILLNESS [None]
  - VISION BLURRED [None]
